FAERS Safety Report 9231021 (Version 2)
Quarter: 2013Q2

REPORT INFORMATION
  Report Type: Spontaneous
  Country: JP (occurrence: JP)
  Receive Date: 20130415
  Receipt Date: 20130422
  Transmission Date: 20140414
  Serious: Yes (Death)
  Sender: FDA-Public Use
  Company Number: JP-ROCHE-1212428

PATIENT
  Sex: 0

DRUGS (1)
  1. MIRCERA [Suspect]
     Indication: RENAL FAILURE CHRONIC
     Route: 058

REACTIONS (2)
  - Fall [Fatal]
  - Contusion [Fatal]
